FAERS Safety Report 9901771 (Version 2)
Quarter: 2014Q1

REPORT INFORMATION
  Report Type: Spontaneous
  Country: US (occurrence: US)
  Receive Date: 20140217
  Receipt Date: 20140217
  Transmission Date: 20141002
  Serious: Yes (Hospitalization)
  Sender: FDA-Public Use
  Company Number: US-GLAXOSMITHKLINE-A0796463A

PATIENT
  Age: 37 Year
  Sex: Female

DRUGS (2)
  1. AVANDIA [Suspect]
     Indication: DIABETES MELLITUS
     Dosage: 2MG PER DAY
     Route: 048
     Dates: end: 200709
  2. AVANDAMET [Suspect]
     Indication: DIABETES MELLITUS
     Dates: end: 200709

REACTIONS (5)
  - Cardiovascular disorder [Unknown]
  - Cerebrovascular accident [Unknown]
  - Amnesia [Unknown]
  - Blindness [Unknown]
  - Hemiparesis [Unknown]
